FAERS Safety Report 5610907-5 (Version None)
Quarter: 2008Q1

REPORT INFORMATION
  Report Type: 
  Country: None (occurrence: None)
  Receive Date: 20080129
  Receipt Date: 20080118
  Transmission Date: 20080703
  Serious: Yes (Hospitalization)
  Sender: FDA-Public Use
  Company Number: 2008BI001467

PATIENT
  Age: 46 Year
  Sex: Female
  Weight: 43.5453 kg

DRUGS (1)
  1. AVONEX [Suspect]
     Indication: MULTIPLE SCLEROSIS
     Dosage: 30 UG; QW; IM
     Route: 030
     Dates: start: 20071208

REACTIONS (4)
  - BACK PAIN [None]
  - DYSURIA [None]
  - HYPERHIDROSIS [None]
  - HYPOAESTHESIA [None]
